FAERS Safety Report 5400691-2 (Version None)
Quarter: 2007Q3

REPORT INFORMATION
  Report Type: 
  Country: None (occurrence: None)
  Receive Date: 20070730
  Receipt Date: 20070718
  Transmission Date: 20080115
  Serious: Yes (Other)
  Sender: FDA-Public Use
  Company Number: FR-PFIZER INC-2007059700

PATIENT
  Sex: Female

DRUGS (3)
  1. LYRICA [Suspect]
     Indication: TREMOR
  2. VIT K ANTAGONISTS [Concomitant]
  3. BETA BLOCKING AGENTS [Concomitant]

REACTIONS (3)
  - ANGINA PECTORIS [None]
  - ARRHYTHMIA [None]
  - DYSPNOEA EXERTIONAL [None]
